FAERS Safety Report 16625716 (Version 1)
Quarter: 2019Q3

REPORT INFORMATION
  Report Type: Spontaneous
  Country: US (occurrence: US)
  Receive Date: 20190724
  Receipt Date: 20190724
  Transmission Date: 20191004
  Serious: Yes (Other)
  Sender: FDA-Public Use
  Company Number: US-ELI_LILLY_AND_COMPANY-US201907009343

PATIENT
  Sex: Male

DRUGS (1)
  1. BASAGLAR [Suspect]
     Active Substance: INSULIN GLARGINE
     Indication: PRODUCT USED FOR UNKNOWN INDICATION
     Dosage: UNK, UNKNOWN
     Route: 065
     Dates: start: 20190701

REACTIONS (5)
  - Blood glucose decreased [Recovering/Resolving]
  - Hyperhidrosis [Unknown]
  - Feeling abnormal [Unknown]
  - Tremor [Unknown]
  - Asthenia [Unknown]

NARRATIVE: CASE EVENT DATE: 20190715
